FAERS Safety Report 10065296 (Version 2)
Quarter: 2014Q2

REPORT INFORMATION
  Report Type: Spontaneous
  Country: US (occurrence: None)
  Receive Date: 20140404
  Receipt Date: 20140422
  Transmission Date: 20141212
  Serious: Yes (Hospitalization)
  Sender: FDA-Public Use
  Company Number: KAD201403-000368

PATIENT
  Age: 66 Year
  Sex: Male
  Weight: 101.9 kg

DRUGS (38)
  1. RIBAVIRIN [Suspect]
     Indication: HEPATITIS C
     Route: 048
     Dates: start: 20131113, end: 20141122
  2. GS-7977 [Suspect]
     Indication: HEPATITIS C
     Route: 048
     Dates: start: 20131113
  3. MITRAZOL 2% (MICONAZOLE) [Concomitant]
  4. CALCIUM GLUCONATE [Concomitant]
  5. CIPRO [Concomitant]
  6. ARANESP [Concomitant]
  7. PROMACTA [Concomitant]
  8. DURAGESIC [Concomitant]
  9. NEUPOGEN [Concomitant]
  10. DILAUDID [Concomitant]
  11. MAGNESIUM OXIDE [Concomitant]
  12. MULTIVITAMINS [Concomitant]
  13. PRILOSEC [Concomitant]
  14. K-DUR [Concomitant]
  15. SENNA [Concomitant]
  16. RAPAMUNE [Concomitant]
  17. ALDACTONE [Concomitant]
  18. TERAZOSIN [Concomitant]
  19. AMBIEN [Concomitant]
  20. ALBUMIN [Concomitant]
  21. VORICONAZOLE [Concomitant]
  22. TACROLIMUS [Concomitant]
  23. ONDANSETRON (ONDANSETRON) [Concomitant]
  24. PROMETHAZINE  (PROMETHAZINE) [Concomitant]
  25. CORTISONE [Concomitant]
  26. ELTROMBOPAG [Concomitant]
  27. VANCOMYCIN [Concomitant]
  28. BACTRIM [Concomitant]
  29. PREDNISONE [Concomitant]
  30. FUROSEMIDE [Concomitant]
  31. HEPARIN [Concomitant]
  32. ESOMEPRAZOLE [Concomitant]
  33. NORMAL SALINE [Concomitant]
  34. METOLAZONE [Concomitant]
  35. OCTREOTIDE [Concomitant]
  36. FENTANYL [Concomitant]
  37. FILGRASTIM [Concomitant]
  38. LASIX [Concomitant]

REACTIONS (13)
  - Atrial fibrillation [None]
  - Fluid overload [None]
  - Pulmonary hypertension [None]
  - Dyspnoea [None]
  - Ventricular extrasystoles [None]
  - QRS axis abnormal [None]
  - Bundle branch block right [None]
  - Blood glucose increased [None]
  - Blood calcium decreased [None]
  - Peripheral swelling [None]
  - Abdominal distension [None]
  - Erythema [None]
  - Arthralgia [None]
